FAERS Safety Report 25984243 (Version 1)
Quarter: 2025Q4

REPORT INFORMATION
  Report Type: Spontaneous
  Country: CN (occurrence: CN)
  Receive Date: 20251031
  Receipt Date: 20251031
  Transmission Date: 20260117
  Serious: Yes (Hospitalization, Other)
  Sender: MERCK SHARP & DOHME LLC
  Company Number: CN-009507513-2344859

PATIENT
  Age: 75 Year
  Sex: Male

DRUGS (8)
  1. ERTAPENEM [Suspect]
     Active Substance: ERTAPENEM
     Indication: Infection
     Route: 041
     Dates: start: 20251005, end: 20251013
  2. BETAHISTINE HYDROCHLORIDE [Suspect]
     Active Substance: BETAHISTINE HYDROCHLORIDE
     Indication: Dizziness
     Route: 041
     Dates: start: 20251011, end: 20251016
  3. BETAHISTINE HYDROCHLORIDE [Suspect]
     Active Substance: BETAHISTINE HYDROCHLORIDE
     Indication: Dizziness
     Route: 041
     Dates: start: 20251008, end: 20251011
  4. SODIUM CHLORIDE [Concomitant]
     Active Substance: SODIUM CHLORIDE
     Indication: Medication dilution
     Route: 041
     Dates: start: 20251005, end: 20251013
  5. HYDROCORTISONE SODIUM SUCCINATE [Concomitant]
     Active Substance: HYDROCORTISONE SODIUM SUCCINATE
     Indication: Pyrexia
     Route: 041
     Dates: start: 20251005, end: 20251005
  6. HERBALS [Suspect]
     Active Substance: HERBALS
     Indication: Dizziness
     Route: 041
     Dates: start: 20251011, end: 20251012
  7. Danhong Injection [Concomitant]
     Indication: Dizziness
     Route: 041
     Dates: start: 20251009, end: 20251022
  8. DEXTROSE [Concomitant]
     Active Substance: DEXTROSE MONOHYDRATE
     Indication: Medication dilution
     Dosage: 5%
     Route: 041
     Dates: start: 20251011, end: 20251012

REACTIONS (7)
  - Dizziness [Recovering/Resolving]
  - Insomnia [Unknown]
  - Restlessness [Recovering/Resolving]
  - Asthenia [Unknown]
  - Disorganised speech [Unknown]
  - Headache [Unknown]
  - Depressed level of consciousness [Recovering/Resolving]

NARRATIVE: CASE EVENT DATE: 20251007
